FAERS Safety Report 25024992 (Version 1)
Quarter: 2025Q1

REPORT INFORMATION
  Report Type: Spontaneous
  Country: IT (occurrence: IT)
  Receive Date: 20250228
  Receipt Date: 20250228
  Transmission Date: 20250409
  Serious: Yes (Death, Hospitalization, Other)
  Sender: MERCK SHARP & DOHME LLC
  Company Number: None

PATIENT
  Sex: Male
  Weight: 12 kg

DRUGS (3)
  1. PROQUAD [Suspect]
     Active Substance: MEASLES VIRUS STRAIN ENDERS^ ATTENUATED EDMONSTON LIVE ANTIGEN\MUMPS VIRUS STRAIN B LEVEL JERYL LYNN
     Indication: Immunisation
     Route: 058
     Dates: start: 20191016, end: 20191016
  2. STERILE DILUENT (WATER) [Suspect]
     Active Substance: WATER
     Dates: start: 20191016
  3. NIMENRIX [Concomitant]
     Active Substance: CLOSTRIDIUM TETANI TOXOID ANTIGEN (FORMALDEHYDE INACTIVATED)\MENINGOCOCCAL POLYSACCHARIDE VACCINE, G
     Indication: Immunisation
     Dosage: DOSE DESCRIPTION : 1ST DOSE?DAILY DOSE : 0.5 MILLILITER
     Route: 030
     Dates: start: 20191016, end: 20191016

REACTIONS (12)
  - Pneumonia [Fatal]
  - Vomiting [Fatal]
  - Multiple organ dysfunction syndrome [Fatal]
  - Dehydration [Unknown]
  - Crying [Unknown]
  - Sopor [Fatal]
  - Cardiac arrest [Fatal]
  - Metabolic acidosis [Fatal]
  - Hypoglycaemia [Fatal]
  - Diarrhoea [Fatal]
  - Pleural effusion [Unknown]
  - Constipation [Unknown]

NARRATIVE: CASE EVENT DATE: 20190101
